FAERS Safety Report 8199119-1 (Version None)
Quarter: 2012Q1

REPORT INFORMATION
  Report Type: 
  Country: None (occurrence: None)
  Receive Date: 20120309
  Receipt Date: 20120228
  Transmission Date: 20120608
  Serious: Yes (Hospitalization)
  Sender: FDA-Public Use
  Company Number: JP-PFIZER INC-2012052974

PATIENT
  Age: 83 Year
  Sex: Male
  Weight: 58 kg

DRUGS (8)
  1. MAGNESIUM OXIDE [Concomitant]
     Indication: CONSTIPATION
     Dosage: 625 MG, 2X/DAY
     Route: 048
  2. EPIRUBICIN HYDROCHLORIDE [Suspect]
     Dosage: 60 MG, UNK
     Dates: start: 20120207, end: 20120207
  3. FAMOTIDINE [Concomitant]
     Indication: PROPHYLAXIS AGAINST GASTROINTESTINAL ULCER
     Dosage: 15 MG, 2X/DAY
     Route: 048
  4. EPIRUBICIN HYDROCHLORIDE [Suspect]
     Dosage: 60 MG, UNK
     Dates: start: 20110111, end: 20110111
  5. EPIRUBICIN HYDROCHLORIDE [Suspect]
     Indication: HEPATIC NEOPLASM MALIGNANT
     Dosage: 60 MG, UNK
     Dates: start: 20100330, end: 20100330
  6. TAMSULOSIN HCL [Concomitant]
     Indication: BENIGN PROSTATIC HYPERPLASIA
     Dosage: 0.1 MG, 2X/DAY
     Route: 048
  7. ASTOMARI [Concomitant]
     Indication: LARYNGEAL CANCER
     Dosage: 15 MG, 2X/DAY
     Route: 048
  8. HOKUNALIN [Concomitant]
     Indication: ASTHMA
     Dosage: 1 MG, 1X/DAY
     Route: 062

REACTIONS (2)
  - BRONCHITIS [None]
  - SEPSIS [None]
